FAERS Safety Report 4443625-X (Version None)
Quarter: 2004Q3

REPORT INFORMATION
  Report Type: 
  Country: None (occurrence: None)
  Receive Date: 20040908
  Receipt Date: 19980610
  Transmission Date: 20050211
  Serious: Yes (Death)
  Sender: FDA-Public Use
  Company Number: 98060021-CAR001

PATIENT
  Age: 71 Year
  Sex: Male

DRUGS (7)
  1. CARVEDILOL [Suspect]
     Indication: CARDIAC FAILURE CONGESTIVE
     Route: 048
     Dates: start: 19980312, end: 19980523
  2. IFENPRODIL TARTRATE [Concomitant]
     Dosage: 60MG PER DAY
     Dates: start: 19980522, end: 19980522
  3. ISOSORBIDE MONONITRATE [Concomitant]
     Dosage: 40MG PER DAY
     Dates: start: 19971026, end: 19980522
  4. MEXILETINE HYDROCHLORIDE [Concomitant]
     Dosage: 150MG PER DAY
     Dates: start: 19980312, end: 19980522
  5. TEMOCAPRIL HYDROCHLORIDE [Concomitant]
     Dosage: 2MG PER DAY
     Dates: start: 19971031, end: 19980522
  6. ISOSORBIDE DINITRATE [Concomitant]
     Dates: start: 19971026, end: 19980522
  7. INDELOXAZINE HYDROCHLORIDE [Concomitant]
     Dates: start: 19971111, end: 19980522

REACTIONS (2)
  - DRUG EFFECT DECREASED [None]
  - SUDDEN DEATH [None]
